FAERS Safety Report 16145030 (Version 1)
Quarter: 2019Q2

REPORT INFORMATION
  Report Type: Spontaneous
  Country: US (occurrence: US)
  Receive Date: 20190401
  Receipt Date: 20190401
  Transmission Date: 20190711
  Serious: Yes (Disabling)
  Sender: FDA-Public Use
  Company Number: None

PATIENT
  Age: 92 Year
  Sex: Male
  Weight: 75.6 kg

DRUGS (1)
  1. LEVOBUNOLOL HYDROCHLORIDE. [Suspect]
     Active Substance: LEVOBUNOLOL HYDROCHLORIDE
     Indication: POSTOPERATIVE CARE
     Dosage: ?          QUANTITY:1 DROP(S);?
     Route: 047
     Dates: start: 20190207, end: 20190328

REACTIONS (1)
  - Pain [None]

NARRATIVE: CASE EVENT DATE: 20190328
